FAERS Safety Report 12737112 (Version 1)
Quarter: 2016Q3

REPORT INFORMATION
  Report Type: Spontaneous
  Country: US (occurrence: US)
  Receive Date: 20160912
  Receipt Date: 20160912
  Transmission Date: 20161109
  Serious: No
  Sender: FDA-Public Use
  Company Number: US-ASTRAZENECA-2016SE92881

PATIENT
  Age: 8 Year
  Sex: Male

DRUGS (4)
  1. PULMICORT FLEXHALER [Suspect]
     Active Substance: BUDESONIDE
     Indication: HYPERSENSITIVITY
     Dosage: 90 MCG 2 PUFFS TWICE A DAY.
     Route: 055
  2. PULMICORT FLEXHALER [Suspect]
     Active Substance: BUDESONIDE
     Indication: ASTHMA
     Dosage: 90 MCG 2 PUFFS TWICE A DAY.
     Route: 055
  3. PULMICORT FLEXHALER [Suspect]
     Active Substance: BUDESONIDE
     Indication: ASTHMA
     Dosage: 90MCG ONE PUFF TWICE DAILY
     Route: 055
  4. PULMICORT FLEXHALER [Suspect]
     Active Substance: BUDESONIDE
     Indication: HYPERSENSITIVITY
     Dosage: 90MCG ONE PUFF TWICE DAILY
     Route: 055

REACTIONS (5)
  - Product use issue [Unknown]
  - Candida infection [Not Recovered/Not Resolved]
  - Intentional product misuse [Not Recovered/Not Resolved]
  - Off label use [Unknown]
  - Drug administered to patient of inappropriate age [Not Recovered/Not Resolved]
